FAERS Safety Report 13187758 (Version 2)
Quarter: 2017Q1

REPORT INFORMATION
  Report Type: Spontaneous
  Country: US (occurrence: US)
  Receive Date: 20170206
  Receipt Date: 20170310
  Transmission Date: 20170428
  Serious: Yes (Other)
  Sender: FDA-Public Use
  Company Number: US-PFIZER INC-2017047821

PATIENT
  Age: 69 Year
  Sex: Female
  Weight: 56.24 kg

DRUGS (2)
  1. IBRANCE [Suspect]
     Active Substance: PALBOCICLIB
     Dosage: 125 MG, CYCLIC 3 WEEKS THEN 1 WEEK OFF (DAY1-21 Q 28 DAYS)
     Route: 048
     Dates: start: 20170208, end: 20170307
  2. IBRANCE [Suspect]
     Active Substance: PALBOCICLIB
     Indication: BREAST CANCER METASTATIC
     Dosage: 125 MG, CYCLIC 3 WEEKS THEN 1 WEEK OFF (DAY1-21 Q 28 DAYS)
     Route: 048
     Dates: start: 20170111

REACTIONS (3)
  - Red blood cell count decreased [Unknown]
  - Platelet count decreased [Unknown]
  - Neoplasm progression [Unknown]

NARRATIVE: CASE EVENT DATE: 2017
